FAERS Safety Report 11058517 (Version 1)
Quarter: 2015Q2

REPORT INFORMATION
  Report Type: Spontaneous
  Country: US (occurrence: None)
  Receive Date: 20150422
  Receipt Date: 20150422
  Transmission Date: 20150821
  Serious: No
  Sender: FDA-Public Use
  Company Number: None

PATIENT
  Age: 54 Year
  Sex: Male
  Weight: 83.92 kg

DRUGS (5)
  1. SYMBACORT [Concomitant]
  2. DILTIAZEM [Concomitant]
     Active Substance: DILTIAZEM
  3. METFORMIN [Concomitant]
     Active Substance: METFORMIN HYDROCHLORIDE
  4. BYDUREON [Suspect]
     Active Substance: EXENATIDE
     Indication: GLYCOSYLATED HAEMOGLOBIN INCREASED
     Dosage: GIVEN INTO/UNDER THE SKIN; ONE SHOT
     Dates: start: 20150110, end: 20150418
  5. LISINOPRIL. [Suspect]
     Active Substance: LISINOPRIL

REACTIONS (3)
  - Dizziness [None]
  - Injection site urticaria [None]
  - Malaise [None]

NARRATIVE: CASE EVENT DATE: 20150418
